FAERS Safety Report 4431494-3 (Version None)
Quarter: 2004Q3

REPORT INFORMATION
  Report Type: 
  Country: None (occurrence: None)
  Receive Date: 20040824
  Receipt Date: 20040818
  Transmission Date: 20050211
  Serious: Yes (Life-Threatening, Other)
  Sender: FDA-Public Use
  Company Number: PHRM2004FR02611

PATIENT
  Age: 57 Year
  Sex: Male

DRUGS (6)
  1. NEORAL [Suspect]
     Indication: GLOMERULONEPHRITIS MEMBRANOUS
     Dosage: 75 MG, BID
     Route: 048
     Dates: start: 20020313, end: 20040617
  2. ALLOPURINOL [Suspect]
     Dosage: 300 MG, DAILY
     Route: 048
     Dates: start: 20040610, end: 20040617
  3. LASIX [Suspect]
  4. RENITEC [Concomitant]
     Indication: HYPERTENSION
     Route: 048
     Dates: start: 20011012, end: 20040617
  5. EUPANTOL [Concomitant]
     Indication: OESOPHAGITIS
     Dosage: 40 MG, DAILY
     Route: 048
     Dates: start: 20020313, end: 20040630
  6. ASPIRIN [Concomitant]
     Route: 048
     Dates: start: 20030630

REACTIONS (7)
  - DEHYDRATION [None]
  - DRUG LEVEL ABOVE THERAPEUTIC [None]
  - GASTROINTESTINAL DISORDER [None]
  - GENERAL PHYSICAL HEALTH DETERIORATION [None]
  - GOUT [None]
  - RENAL FAILURE ACUTE [None]
  - RENAL IMPAIRMENT [None]
